FAERS Safety Report 17690116 (Version 1)
Quarter: 2020Q2

REPORT INFORMATION
  Report Type: Spontaneous
  Country: US (occurrence: US)
  Receive Date: 20200420
  Receipt Date: 20200420
  Transmission Date: 20200714
  Serious: Yes (Hospitalization)
  Sender: FDA-Public Use
  Company Number: None

PATIENT
  Sex: Female

DRUGS (1)
  1. APREPITANT 80 + 125 MG [Suspect]
     Active Substance: APREPITANT
     Indication: GALLBLADDER CANCER
     Dosage: ?          OTHER DOSE:80 + 125 MG;?
     Route: 048
     Dates: start: 20191211

REACTIONS (2)
  - Therapy interrupted [None]
  - Abdominal pain [None]
